FAERS Safety Report 25543482 (Version 1)
Quarter: 2025Q3

REPORT INFORMATION
  Report Type: Spontaneous
  Country: US (occurrence: US)
  Receive Date: 20250711
  Receipt Date: 20250711
  Transmission Date: 20251020
  Serious: Yes (Other)
  Sender: AMGEN
  Company Number: US-AMGEN-USASP2025133622

PATIENT
  Age: 69 Year

DRUGS (4)
  1. KYPROLIS [Suspect]
     Active Substance: CARFILZOMIB
     Indication: Waldenstrom^s macroglobulinaemia
     Route: 040
     Dates: end: 202502
  2. KYPROLIS [Suspect]
     Active Substance: CARFILZOMIB
     Indication: Off label use
  3. CYCLOPHOSPHAMIDE [Concomitant]
     Active Substance: CYCLOPHOSPHAMIDE
     Indication: Waldenstrom^s macroglobulinaemia
     Route: 065
     Dates: end: 202502
  4. DEXAMETHASONE [Concomitant]
     Active Substance: DEXAMETHASONE
     Indication: Waldenstrom^s macroglobulinaemia
     Route: 040
     Dates: end: 202502

REACTIONS (3)
  - Neuralgia [Not Recovered/Not Resolved]
  - Costochondritis [Not Recovered/Not Resolved]
  - Off label use [Unknown]

NARRATIVE: CASE EVENT DATE: 20250101
